FAERS Safety Report 9888425 (Version 2)
Quarter: 2014Q2

REPORT INFORMATION
  Report Type: Spontaneous
  Country: JP (occurrence: JP)
  Receive Date: 20140211
  Receipt Date: 20140630
  Transmission Date: 20141212
  Serious: Yes (Life-Threatening, Hospitalization)
  Sender: FDA-Public Use
  Company Number: JP-ROCHE-1346184

PATIENT
  Sex: Female

DRUGS (21)
  1. RITUXAN [Suspect]
     Indication: DIFFUSE LARGE B-CELL LYMPHOMA
     Route: 042
     Dates: start: 20100203
  2. RITUXAN [Suspect]
     Route: 042
     Dates: start: 20100210
  3. RITUXAN [Suspect]
     Route: 042
     Dates: start: 20100217
  4. RITUXAN [Suspect]
     Route: 042
     Dates: start: 20100224
  5. RITUXAN [Suspect]
     Route: 042
     Dates: start: 20100303
  6. RITUXAN [Suspect]
     Route: 042
     Dates: start: 20100310
  7. RITUXAN [Suspect]
     Route: 042
     Dates: start: 20100317
  8. RITUXAN [Suspect]
     Route: 042
     Dates: start: 20100324
  9. RITUXAN [Suspect]
     Route: 042
     Dates: start: 20100326
  10. MELPHALAN [Suspect]
     Indication: DIFFUSE LARGE B-CELL LYMPHOMA
     Route: 065
     Dates: start: 20120810
  11. CYCLOPHOSPHAMIDE [Suspect]
     Indication: DIFFUSE LARGE B-CELL LYMPHOMA
     Route: 065
  12. ETOPOSIDE [Suspect]
     Indication: DIFFUSE LARGE B-CELL LYMPHOMA
     Route: 065
  13. CYLOCIDE [Suspect]
     Indication: DIFFUSE LARGE B-CELL LYMPHOMA
     Route: 042
     Dates: start: 20120326, end: 20120614
  14. DEXAMETHASONE [Suspect]
     Indication: IMMUNOSUPPRESSION
     Route: 065
  15. PREDONINE [Concomitant]
     Indication: DIFFUSE LARGE B-CELL LYMPHOMA
     Route: 048
     Dates: start: 20100204, end: 20100709
  16. ADRIACIN [Concomitant]
     Indication: DIFFUSE LARGE B-CELL LYMPHOMA
     Route: 042
     Dates: start: 20100204, end: 20100705
  17. ENDOXAN [Concomitant]
     Indication: DIFFUSE LARGE B-CELL LYMPHOMA
     Route: 042
     Dates: start: 20100204, end: 20100705
  18. ONCOVIN [Concomitant]
     Indication: DIFFUSE LARGE B-CELL LYMPHOMA
     Route: 042
     Dates: start: 20100204, end: 20100705
  19. ONCOVIN [Concomitant]
     Route: 042
  20. ETOPOSIDE [Concomitant]
     Route: 042
     Dates: start: 20120326, end: 20120614
  21. DECADRON [Concomitant]
     Route: 042
     Dates: start: 20120326, end: 20120614

REACTIONS (1)
  - Progressive multifocal leukoencephalopathy [Not Recovered/Not Resolved]
